FAERS Safety Report 7780580-9 (Version None)
Quarter: 2011Q3

REPORT INFORMATION
  Report Type: 
  Country: None (occurrence: None)
  Receive Date: 20110923
  Receipt Date: 20110916
  Transmission Date: 20111222
  Serious: Yes (Death, Other)
  Sender: FDA-Public Use
  Company Number: 2011-01067

PATIENT
  Age: 10 Year
  Sex: Female

DRUGS (1)
  1. CEFTRIAXONE [Suspect]
     Indication: PYREXIA

REACTIONS (11)
  - PLEURAL EFFUSION [None]
  - TACHYCARDIA [None]
  - MULTI-ORGAN FAILURE [None]
  - RENAL FAILURE ACUTE [None]
  - RESPIRATORY FAILURE [None]
  - MENTAL STATUS CHANGES [None]
  - LUNG INFILTRATION [None]
  - DISSEMINATED INTRAVASCULAR COAGULATION [None]
  - FAECAL INCONTINENCE [None]
  - URINARY INCONTINENCE [None]
  - HAEMODIALYSIS [None]
